FAERS Safety Report 13139224 (Version 1)
Quarter: 2017Q1

REPORT INFORMATION
  Report Type: Spontaneous
  Country: FR (occurrence: FR)
  Receive Date: 20170123
  Receipt Date: 20170123
  Transmission Date: 20170428
  Serious: Yes (Hospitalization, Other)
  Sender: FDA-Public Use
  Company Number: FR-PFIZER INC-2017026526

PATIENT
  Age: 88 Year
  Sex: Female

DRUGS (5)
  1. BREXIN [PIROXICAM] [Suspect]
     Active Substance: PIROXICAM BETADEX
     Indication: ARTHRALGIA
     Dosage: 20 MG, QD
     Route: 048
     Dates: start: 2016, end: 20161206
  2. IMOVANE [Concomitant]
     Active Substance: ZOPICLONE
     Dosage: UNK
     Route: 065
  3. ELIQUIS [Suspect]
     Active Substance: APIXABAN
     Indication: CEREBROVASCULAR ACCIDENT PROPHYLAXIS
     Dosage: 2.5 MG, BID
     Route: 048
     Dates: end: 201612
  4. BISOPROLOL [Concomitant]
     Active Substance: BISOPROLOL
     Dosage: 2.5 MG, QD
     Route: 065
  5. IMOVANE [Concomitant]
     Active Substance: ZOPICLONE
     Dosage: 0.5 MG, UNK
     Route: 065

REACTIONS (4)
  - Fractured sacrum [Unknown]
  - Fall [Unknown]
  - Gastrointestinal haemorrhage [Recovered/Resolved]
  - Gastroduodenal ulcer [Recovering/Resolving]

NARRATIVE: CASE EVENT DATE: 20161206
